FAERS Safety Report 4643025-3 (Version None)
Quarter: 2005Q2

REPORT INFORMATION
  Report Type: 
  Country: None (occurrence: None)
  Receive Date: 20050422
  Receipt Date: 20050412
  Transmission Date: 20051028
  Serious: Yes (Hospitalization, Other)
  Sender: FDA-Public Use
  Company Number: S05-USA-01923-01

PATIENT
  Age: 35 Year
  Sex: Male

DRUGS (5)
  1. THYROID TAB [Suspect]
     Indication: HYPOTHYROIDISM
     Dosage: 60 MG QD PO
     Route: 048
     Dates: start: 20020201, end: 20020901
  2. AFRIN [Suspect]
     Indication: SEASONAL ALLERGY
     Dates: start: 20020901, end: 20020901
  3. AFRIN (OXYMETAZOLINE) [Suspect]
     Indication: SEASONAL ALLERGY
     Dates: start: 20020901, end: 20020901
  4. SUDAFED 12 HOUR [Suspect]
     Indication: SEASONAL ALLERGY
     Dates: start: 20020901, end: 20020901
  5. SUDAFED 12 HOUR [Suspect]
     Indication: SEASONAL ALLERGY
     Dates: start: 20020901, end: 20020901

REACTIONS (7)
  - AGITATION [None]
  - AMNESIA [None]
  - CONFUSIONAL STATE [None]
  - DRUG INTERACTION [None]
  - PHYSICAL ASSAULT [None]
  - SPEECH DISORDER [None]
  - THINKING ABNORMAL [None]
